FAERS Safety Report 15248095 (Version 1)
Quarter: 2018Q3

REPORT INFORMATION
  Report Type: Spontaneous
  Country: US (occurrence: US)
  Receive Date: 20180807
  Receipt Date: 20180807
  Transmission Date: 20181010
  Serious: Yes (Life-Threatening, Hospitalization, Other)
  Sender: FDA-Public Use
  Company Number: US-AUROBINDO-AUR-APL-2018-038083

PATIENT
  Age: 20 Year
  Sex: Male

DRUGS (1)
  1. PIPERACILLIN AND TAZOBACTAM [Suspect]
     Active Substance: PIPERACILLIN SODIUM\TAZOBACTAM SODIUM
     Indication: EVIDENCE BASED TREATMENT
     Route: 065

REACTIONS (5)
  - Drug administration error [Unknown]
  - Haemoptysis [Unknown]
  - Thrombocytopenia [Recovering/Resolving]
  - Wound haemorrhage [Unknown]
  - Respiratory failure [Unknown]
